FAERS Safety Report 6088868-7 (Version None)
Quarter: 2009Q1

REPORT INFORMATION
  Report Type: 
  Country: None (occurrence: None)
  Receive Date: 20090224
  Receipt Date: 20090217
  Transmission Date: 20090719
  Serious: Yes (Other)
  Sender: FDA-Public Use
  Company Number: PHHY2009FR05827

PATIENT
  Age: 24 Year
  Sex: Female

DRUGS (2)
  1. LAMISIL [Suspect]
     Dosage: UNK
     Route: 048
     Dates: start: 20080801, end: 20081206
  2. COUMADIN [Suspect]
     Dosage: UNK
     Dates: start: 20020301

REACTIONS (9)
  - ERYTHEMA [None]
  - INTERNATIONAL NORMALISED RATIO DECREASED [None]
  - LICHENOID KERATOSIS [None]
  - PRURITUS [None]
  - RASH ERYTHEMATOUS [None]
  - SKIN EXFOLIATION [None]
  - SKIN LESION [None]
  - THROMBOCYTOPENIA [None]
  - TOXIC SKIN ERUPTION [None]
